FAERS Safety Report 17047331 (Version 1)
Quarter: 2019Q4

REPORT INFORMATION
  Report Type: Spontaneous
  Country: US (occurrence: US)
  Receive Date: 20191018
  Receipt Date: 20191018
  Transmission Date: 20200122
  Serious: Yes (Hospitalization, Other)
  Sender: FDA-Public Use
  Company Number: None

PATIENT
  Age: 36 Year
  Sex: Female

DRUGS (1)
  1. TOBRAMYCIN NEB 300MG/5ML [Suspect]
     Active Substance: TOBRAMYCIN
     Route: 055
     Dates: start: 201901, end: 201905

REACTIONS (1)
  - Lung transplant [None]

NARRATIVE: CASE EVENT DATE: 20190909
